FAERS Safety Report 10207855 (Version 1)
Quarter: 2014Q2

REPORT INFORMATION
  Report Type: Spontaneous
  Country: US (occurrence: None)
  Receive Date: 20140527
  Receipt Date: 20140527
  Transmission Date: 20141212
  Serious: No
  Sender: FDA-Public Use
  Company Number: None

PATIENT
  Age: 28 Year
  Sex: Male

DRUGS (1)
  1. RAPTOR [Suspect]
     Indication: MUSCLE BUILDING THERAPY
     Dates: start: 20120901, end: 20120928

REACTIONS (2)
  - Cholestasis [None]
  - Jaundice [None]
